FAERS Safety Report 20574440 (Version 1)
Quarter: 2022Q1

REPORT INFORMATION
  Report Type: Spontaneous
  Country: None (occurrence: GB)
  Receive Date: 20220309
  Receipt Date: 20220309
  Transmission Date: 20220423
  Serious: Yes (Other)
  Sender: FDA-Public Use
  Company Number: GB-Canton Laboratories, LLC-2126616

PATIENT
  Age: 59 Year
  Sex: Male

DRUGS (5)
  1. NAPROSYN [Suspect]
     Active Substance: NAPROXEN
     Indication: Product used for unknown indication
     Route: 065
     Dates: start: 20220202, end: 20220221
  2. BUPIVACAINE [Concomitant]
     Active Substance: BUPIVACAINE
  3. FLUCLOXACILLIN [Concomitant]
     Active Substance: FLUCLOXACILLIN
  4. LIDOCAINE [Concomitant]
     Active Substance: LIDOCAINE
     Dates: start: 20220128, end: 20220129
  5. OMEPRAZOLE [Concomitant]
     Active Substance: OMEPRAZOLE
     Dates: start: 20220202

REACTIONS (4)
  - Hypersensitivity [Recovering/Resolving]
  - Mouth swelling [Unknown]
  - Oropharyngeal discomfort [Unknown]
  - Angioedema [Unknown]

NARRATIVE: CASE EVENT DATE: 20220221
